FAERS Safety Report 16049831 (Version 3)
Quarter: 2020Q3

REPORT INFORMATION
  Report Type: Spontaneous
  Country: US (occurrence: US)
  Receive Date: 20190307
  Receipt Date: 20200929
  Transmission Date: 20201102
  Serious: Yes (Other)
  Sender: FDA-Public Use
  Company Number: US-ASTRAZENECA-2018SF65055

PATIENT
  Age: 65 Year
  Sex: Female
  Weight: 117.9 kg

DRUGS (37)
  1. CLINDAMYCIN. [Concomitant]
     Active Substance: CLINDAMYCIN
  2. LISINOPRIL. [Concomitant]
     Active Substance: LISINOPRIL
  3. PREDNISOLONE. [Concomitant]
     Active Substance: PREDNISOLONE
  4. IBUPROFEN. [Concomitant]
     Active Substance: IBUPROFEN
  5. MONTELUKAST [Concomitant]
     Active Substance: MONTELUKAST SODIUM
  6. GLIMEPIRIDE. [Concomitant]
     Active Substance: GLIMEPIRIDE
  7. AMLODIPINE BESYLATE. [Concomitant]
     Active Substance: AMLODIPINE BESYLATE
  8. PROLENSA [Concomitant]
     Active Substance: BROMFENAC SODIUM
  9. NEXIUM [Suspect]
     Active Substance: ESOMEPRAZOLE MAGNESIUM
     Indication: GASTROOESOPHAGEAL REFLUX DISEASE
     Route: 048
     Dates: start: 198401, end: 201812
  10. PRILOSEC [Suspect]
     Active Substance: OMEPRAZOLE MAGNESIUM
     Indication: GASTROOESOPHAGEAL REFLUX DISEASE
     Dosage: GENERIC
     Route: 065
  11. PREVACID 24 HR [Suspect]
     Active Substance: LANSOPRAZOLE
     Indication: GASTROOESOPHAGEAL REFLUX DISEASE
     Route: 065
     Dates: start: 198401, end: 201812
  12. ECONAZOLE NITRATE. [Concomitant]
     Active Substance: ECONAZOLE NITRATE
  13. PRILOSEC [Suspect]
     Active Substance: OMEPRAZOLE MAGNESIUM
     Indication: GASTROOESOPHAGEAL REFLUX DISEASE
     Route: 048
     Dates: start: 198401, end: 201812
  14. CARVEDILOL. [Concomitant]
     Active Substance: CARVEDILOL
  15. AZITHROMYCIN ANHYDROUS. [Concomitant]
     Active Substance: AZITHROMYCIN ANHYDROUS
  16. MUPIROCIN. [Concomitant]
     Active Substance: MUPIROCIN
  17. PRAVASTATIN. [Concomitant]
     Active Substance: PRAVASTATIN
  18. FEXOFENADINE [Concomitant]
     Active Substance: FEXOFENADINE HYDROCHLORIDE
  19. NEXIUM 24HR [Suspect]
     Active Substance: ESOMEPRAZOLE MAGNESIUM
     Indication: GASTROOESOPHAGEAL REFLUX DISEASE
     Route: 048
     Dates: start: 198401, end: 201812
  20. VENTOLIN [Concomitant]
     Active Substance: ALBUTEROL SULFATE
  21. LYRICA [Concomitant]
     Active Substance: PREGABALIN
  22. FLUTICASONE. [Concomitant]
     Active Substance: FLUTICASONE
  23. JANUVIA [Concomitant]
     Active Substance: SITAGLIPTIN PHOSPHATE
  24. BENZONATATE. [Concomitant]
     Active Substance: BENZONATATE
  25. JARDIANCE [Concomitant]
     Active Substance: EMPAGLIFLOZIN
  26. ORPHENADRINE [Concomitant]
     Active Substance: ORPHENADRINE
  27. ERYTHROMYCIN. [Concomitant]
     Active Substance: ERYTHROMYCIN
  28. PRILOSEC [Suspect]
     Active Substance: OMEPRAZOLE MAGNESIUM
     Indication: GASTROOESOPHAGEAL REFLUX DISEASE
     Dosage: GENERIC
     Route: 065
     Dates: start: 198401, end: 201812
  29. CIPROFLOXACIN. [Concomitant]
     Active Substance: CIPROFLOXACIN
  30. AMLODIPINE [Concomitant]
     Active Substance: AMLODIPINE BESYLATE
  31. OLOPATADINE. [Concomitant]
     Active Substance: OLOPATADINE
  32. OXYBUTYNIN. [Concomitant]
     Active Substance: OXYBUTYNIN CHLORIDE
  33. VITAMIN D2 [Concomitant]
     Active Substance: ERGOCALCIFEROL
  34. DOXYCYCLINE MONOHYDRATE [Concomitant]
     Active Substance: DOXYCYCLINE
  35. VOLTAREN [Concomitant]
     Active Substance: DICLOFENAC SODIUM
  36. PREVACID [Suspect]
     Active Substance: LANSOPRAZOLE
     Indication: GASTROOESOPHAGEAL REFLUX DISEASE
     Route: 065
     Dates: start: 198401, end: 201812
  37. ROSUVASTATIN. [Concomitant]
     Active Substance: ROSUVASTATIN

REACTIONS (3)
  - Tubulointerstitial nephritis [Not Recovered/Not Resolved]
  - Renal injury [Unknown]
  - Chronic kidney disease [Not Recovered/Not Resolved]

NARRATIVE: CASE EVENT DATE: 2012
